FAERS Safety Report 21224453 (Version 1)
Quarter: 2022Q3

REPORT INFORMATION
  Report Type: Spontaneous
  Country: US (occurrence: US)
  Receive Date: 20220817
  Receipt Date: 20220817
  Transmission Date: 20221027
  Serious: Yes (Other)
  Sender: FDA-Public Use
  Company Number: US-ALLERGAN-2226416US

PATIENT
  Sex: Female

DRUGS (5)
  1. VIBERZI [Suspect]
     Active Substance: ELUXADOLINE
     Indication: Abdominal pain upper
     Dosage: 200 MG, QD
     Route: 048
  2. BYSTOLIC [Concomitant]
     Active Substance: NEBIVOLOL HYDROCHLORIDE
     Indication: Blood pressure measurement
  3. SINGULAIR [Concomitant]
     Active Substance: MONTELUKAST SODIUM
     Indication: Asthma
  4. SINGULAIR [Concomitant]
     Active Substance: MONTELUKAST SODIUM
     Indication: Hypersensitivity
  5. LEVOTHYROXINE [Concomitant]
     Active Substance: LEVOTHYROXINE
     Indication: Thyroid hormone replacement therapy

REACTIONS (4)
  - Basal cell carcinoma [Recovering/Resolving]
  - Product use in unapproved indication [Unknown]
  - Rash erythematous [Recovering/Resolving]
  - Constipation [Unknown]

NARRATIVE: CASE EVENT DATE: 20220720
